FAERS Safety Report 8376753-7 (Version None)
Quarter: 2012Q2

REPORT INFORMATION
  Report Type: 
  Country: None (occurrence: None)
  Receive Date: 20120522
  Receipt Date: 20120427
  Transmission Date: 20120825
  Serious: No
  Sender: FDA-Public Use
  Company Number: US-BRISTOL-MYERS SQUIBB COMPANY-16558785

PATIENT
  Age: 64 Year
  Sex: Female
  Weight: 86 kg

DRUGS (4)
  1. LISINOPRIL [Concomitant]
  2. SYMBICORT [Suspect]
     Indication: CHRONIC OBSTRUCTIVE PULMONARY DISEASE
     Dosage: 1 DF= 2 PUFFS. 2 PUFF IN MORNING AND 2 PUFFS IN EVE 160/4.5MCG
     Route: 055
     Dates: start: 20090101
  3. METFORMIN HCL [Concomitant]
     Indication: DIABETES MELLITUS
  4. ONGLYZA [Suspect]
     Indication: DIABETES MELLITUS

REACTIONS (1)
  - DYSPNOEA [None]
